FAERS Safety Report 9554420 (Version 2)
Quarter: 2013Q4

REPORT INFORMATION
  Report Type: Report from Study
  Country: JP (occurrence: JP)
  Receive Date: 20130925
  Receipt Date: 20131111
  Transmission Date: 20140711
  Serious: Yes (Life-Threatening, Hospitalization)
  Sender: FDA-Public Use
  Company Number: JP-PFIZER INC-2013271574

PATIENT
  Age: 74 Year
  Sex: Male
  Weight: 52.6 kg

DRUGS (14)
  1. REVATIO [Suspect]
     Indication: PULMONARY HYPERTENSION
     Dosage: 20 MG, 1X/DAY
     Route: 048
     Dates: start: 20130523, end: 20130527
  2. REVATIO [Suspect]
     Dosage: 20 MG, 2X/DAY
     Route: 048
     Dates: start: 20130528, end: 20130530
  3. REVATIO [Suspect]
     Dosage: 20 MG, 3X/DAY
     Route: 048
     Dates: start: 20130531, end: 20130723
  4. REVATIO [Suspect]
     Dosage: 20 MG, 2X/DAY
     Route: 048
     Dates: start: 20130724, end: 20130730
  5. REVATIO [Suspect]
     Dosage: 20 MG, 1X/DAY
     Route: 048
     Dates: start: 20130731, end: 20130806
  6. NINTEDANIB [Concomitant]
     Indication: IDIOPATHIC PULMONARY FIBROSIS
     Dosage: 150 MG, 2X/DAY
     Route: 048
     Dates: start: 201112
  7. THEOLONG [Concomitant]
     Indication: ASTHMA
     Dosage: 100 MG, 2X/DAY
     Route: 048
  8. MUCODYNE [Concomitant]
     Indication: ASTHMA
     Dosage: 500 MG, 3X/DAY
     Route: 048
  9. MUCOSOLVAN [Concomitant]
     Indication: ASTHMA
     Dosage: 1 DF, 3X/DAY
     Route: 048
  10. HARNAL [Concomitant]
     Indication: BENIGN PROSTATIC HYPERPLASIA
     Dosage: 0.2 MG, 1X/DAY
     Route: 048
     Dates: start: 20130601, end: 20130721
  11. LOPEMIN [Concomitant]
     Indication: BOWEL MOVEMENT IRREGULARITY
     Dosage: 1 MG, 1X/DAY
     Route: 048
  12. MIYA BM [Concomitant]
     Indication: BOWEL MOVEMENT IRREGULARITY
     Dosage: 1 DF, 3X/DAY
     Route: 048
     Dates: end: 20130723
  13. SPIRIVA [Concomitant]
     Indication: ASTHMA
     Dosage: 1 INHALATION DAILY
     Route: 055
  14. SYMBICORT [Concomitant]
     Indication: ASTHMA
     Dosage: 2 INHALATIONS TWICE DAILY
     Route: 055

REACTIONS (1)
  - Idiopathic pulmonary fibrosis [Recovered/Resolved]
